FAERS Safety Report 5276440-8 (Version None)
Quarter: 2007Q1

REPORT INFORMATION
  Report Type: 
  Country: None (occurrence: None)
  Receive Date: 20061213
  Receipt Date: 20040105
  Transmission Date: 20070707
  Serious: Yes (Hospitalization)
  Sender: FDA-Public Use
  Company Number: 2004UW0054

PATIENT
  Age: 45 Year
  Sex: Female

DRUGS (5)
  1. SEROQUEL [Suspect]
     Indication: SOMNOLENCE
     Dates: start: 20030101, end: 20030101
  2. PROZAC [Suspect]
     Indication: SOMNOLENCE
     Dates: start: 20030101, end: 20030101
  3. SUDAFED LA [Concomitant]
  4. HYOSCAMINE [Concomitant]
  5. LITHIUM CARBONATE [Concomitant]

REACTIONS (1)
  - MANIA [None]
